FAERS Safety Report 6250944-3 (Version None)
Quarter: 2009Q2

REPORT INFORMATION
  Report Type: 
  Country: None (occurrence: None)
  Receive Date: 20090630
  Receipt Date: 20090624
  Transmission Date: 20091009
  Serious: Yes (Hospitalization, Other)
  Sender: FDA-Public Use
  Company Number: DE-ABBOTT-09P-062-0581806-00

PATIENT
  Sex: Male

DRUGS (2)
  1. HUMIRA [Suspect]
     Indication: CROHN'S DISEASE
     Dates: start: 20080718
  2. ANTIBIOTICS [Concomitant]
     Indication: INNER EAR INFLAMMATION

REACTIONS (5)
  - BALANCE DISORDER [None]
  - CATARACT [None]
  - INNER EAR INFLAMMATION [None]
  - OEDEMA PERIPHERAL [None]
  - POLYARTHRITIS [None]
